FAERS Safety Report 12283772 (Version 1)
Quarter: 2016Q2

REPORT INFORMATION
  Report Type: Spontaneous
  Country: US (occurrence: US)
  Receive Date: 20160419
  Receipt Date: 20160419
  Transmission Date: 20160815
  Serious: No
  Sender: FDA-Public Use
  Company Number: US-BANPHARM-20154003

PATIENT
  Age: 51 Year
  Sex: Male
  Weight: 77.11 kg

DRUGS (2)
  1. ALKA-SELTZER PLUS NOS [Suspect]
     Active Substance: ACETAMINOPHEN\ASPIRIN\CHLORPHENIRAMINE MALEATE\DEXTROMETHORPHAN HYDROBROMIDE\DIPHENHYDRAMINE HYDROCHLORIDE\DOXYLAMINE SUCCINATE\PHENYLEPHRINE BITARTRATE\PHENYLEPHRINE HYDROCHLORIDE
     Dosage: 2 DF, PRN,
  2. ALEVE [Suspect]
     Active Substance: NAPROXEN SODIUM
     Indication: BURSITIS
     Dosage: 2 DF, ONCE DAILY,
     Route: 048
     Dates: start: 201412

REACTIONS (2)
  - Incorrect drug administration duration [Unknown]
  - Tinnitus [Recovered/Resolved]

NARRATIVE: CASE EVENT DATE: 201401
